FAERS Safety Report 16947291 (Version 2)
Quarter: 2019Q4

REPORT INFORMATION
  Report Type: Report from Study
  Country: ES (occurrence: ES)
  Receive Date: 20191022
  Receipt Date: 20191101
  Transmission Date: 20200122
  Serious: Yes (Hospitalization)
  Sender: FDA-Public Use
  Company Number: ES-JNJFOC-20191016554

PATIENT

DRUGS (1)
  1. STELARA [Suspect]
     Active Substance: USTEKINUMAB
     Indication: CROHN^S DISEASE
     Route: 058

REACTIONS (7)
  - Crohn^s disease [Unknown]
  - Anorectal disorder [Unknown]
  - Infection [Unknown]
  - Laboratory test abnormal [Unknown]
  - Off label use [Unknown]
  - Product use issue [Unknown]
  - Infusion related reaction [Unknown]
